FAERS Safety Report 24183337 (Version 1)
Quarter: 2024Q3

REPORT INFORMATION
  Report Type: Spontaneous
  Country: EU (occurrence: EU)
  Receive Date: 20240807
  Receipt Date: 20240807
  Transmission Date: 20241017
  Serious: Yes (Other)
  Sender: SEPTODONT
  Company Number: None

PATIENT

DRUGS (1)
  1. ARTICAINE HYDROCHLORIDE\EPINEPHRINE BITARTRATE [Suspect]
     Active Substance: ARTICAINE HYDROCHLORIDE\EPINEPHRINE BITARTRATE
     Indication: Dental local anaesthesia
     Dosage: 3X1.7 ML
     Route: 004
     Dates: start: 20240724, end: 20240724

REACTIONS (1)
  - Mucosal necrosis [Recovering/Resolving]

NARRATIVE: CASE EVENT DATE: 20240726
